FAERS Safety Report 20101785 (Version 1)
Quarter: 2021Q4

REPORT INFORMATION
  Report Type: Report from Study
  Country: AT (occurrence: AT)
  Receive Date: 20211123
  Receipt Date: 20211123
  Transmission Date: 20220303
  Serious: Yes (Hospitalization)
  Sender: FDA-Public Use
  Company Number: AT-ABBVIE-21K-009-3850384-00

PATIENT
  Sex: Male

DRUGS (5)
  1. SKYRIZI [Suspect]
     Active Substance: RISANKIZUMAB-RZAA
     Indication: Psoriasis
     Route: 058
     Dates: start: 20191104
  2. BISOPROLOL FUMARATE [Concomitant]
     Active Substance: BISOPROLOL FUMARATE
     Indication: Hypertension
     Dosage: FREQUENCY: 1 - 0 - 0.5
     Route: 048
     Dates: start: 20191120
  3. ACEMIN [Concomitant]
     Indication: Hypertension
     Dosage: FREQUENCY: 1 - 0 - 1
     Route: 048
     Dates: start: 20191120
  4. IVABRADINE [Concomitant]
     Active Substance: IVABRADINE
     Indication: Hypertension
     Dosage: FREQUENCY: 1 - 0 - 0
     Route: 048
     Dates: start: 20191120
  5. TORSEMIDE [Concomitant]
     Active Substance: TORSEMIDE
     Indication: Hypertension
     Dosage: FREQUENCY: 0,5 - 0 - 0
     Route: 048
     Dates: start: 20191120

REACTIONS (2)
  - Angina pectoris [Recovered/Resolved]
  - Myocarditis [Recovered/Resolved]

NARRATIVE: CASE EVENT DATE: 20191119
